FAERS Safety Report 8093628-1 (Version None)
Quarter: 2012Q1

REPORT INFORMATION
  Report Type: 
  Country: None (occurrence: None)
  Receive Date: 20120129
  Receipt Date: 20110922
  Transmission Date: 20120608
  Serious: No
  Sender: FDA-Public Use
  Company Number: US-ABBOTT-11P-163-0856950-00

PATIENT
  Age: 48 Year
  Sex: Female

DRUGS (11)
  1. TRAZODONE HCL [Concomitant]
     Indication: DEPRESSION
     Dosage: AT BEDTIME
  2. CYMBALTA [Concomitant]
     Indication: PAIN
  3. MIRALAX [Concomitant]
     Indication: CONSTIPATION
  4. HUMIRA [Suspect]
     Indication: RHEUMATOID ARTHRITIS
     Dates: start: 20110701
  5. ACTONEL [Concomitant]
     Indication: OSTEOARTHRITIS
  6. DURAGESIC-100 [Concomitant]
     Indication: BACK PAIN
     Dosage: PATCH
  7. DURAGESIC-100 [Concomitant]
     Indication: ARTHRALGIA
  8. VIT C [Concomitant]
     Indication: VITAMIN SUPPLEMENTATION
  9. VIACTIV MULTI VIT [Concomitant]
     Indication: VITAMIN SUPPLEMENTATION
  10. CYMBALTA [Concomitant]
     Indication: DEPRESSION
  11. FENTORA [Concomitant]
     Indication: BREAKTHROUGH PAIN

REACTIONS (1)
  - ARTHRALGIA [None]
